FAERS Safety Report 4733127-5 (Version None)
Quarter: 2005Q3

REPORT INFORMATION
  Report Type: 
  Country: None (occurrence: None)
  Receive Date: 20050803
  Receipt Date: 20050705
  Transmission Date: 20060218
  Serious: Yes (Hospitalization)
  Sender: FDA-Public Use
  Company Number: US-MERCK-0507USA00579

PATIENT
  Age: 73 Year
  Sex: Male
  Weight: 114 kg

DRUGS (7)
  1. VIOXX [Suspect]
     Indication: ARTHRITIS
     Route: 048
     Dates: start: 20030101, end: 20030701
  2. VIOXX [Suspect]
     Route: 048
     Dates: start: 20030101, end: 20030701
  3. VIOXX [Suspect]
     Indication: ARTHROPATHY
     Route: 048
     Dates: start: 20030101, end: 20030701
  4. VIOXX [Suspect]
     Route: 048
     Dates: start: 20030101, end: 20030701
  5. [THERAPY UNSPECIFIED] [Concomitant]
     Indication: BLOOD GLUCOSE ABNORMAL
     Route: 065
  6. [THERAPY UNSPECIFIED] [Concomitant]
     Indication: PAIN
     Route: 065
  7. [THERAPY UNSPECIFIED] [Concomitant]
     Indication: BLOOD PRESSURE ABNORMAL
     Route: 065

REACTIONS (1)
  - CEREBROVASCULAR ACCIDENT [None]
